FAERS Safety Report 8919272 (Version 1)
Quarter: 2012Q4

REPORT INFORMATION
  Report Type: 
  Country: FR (occurrence: FR)
  Receive Date: 20121121
  Receipt Date: 20121121
  Transmission Date: 20130627
  Serious: Yes (Hospitalization, Other)
  Sender: FDA-Public Use
  Company Number: FR-ELI_LILLY_AND_COMPANY-FR201211004075

PATIENT
  Age: 74 Year
  Sex: Male

DRUGS (3)
  1. FORSTEO [Suspect]
     Indication: OSTEOPOROSIS
     Dosage: 20 ug, qd
     Route: 058
     Dates: start: 20120804, end: 20121030
  2. ANXIOLYTICS [Concomitant]
     Dosage: UNK
  3. ANTIDEPRESSANTS [Concomitant]
     Dosage: UNK

REACTIONS (2)
  - Syncope [Recovered/Resolved]
  - Renal failure [Unknown]
